FAERS Safety Report 17556984 (Version 1)
Quarter: 2020Q1

REPORT INFORMATION
  Report Type: Spontaneous
  Country: US (occurrence: US)
  Receive Date: 20200318
  Receipt Date: 20200318
  Transmission Date: 20200409
  Serious: No
  Sender: FDA-Public Use
  Company Number: US-ENDO PHARMACEUTICALS INC-2019-110691

PATIENT
  Age: 70 Year
  Sex: Male
  Weight: 92.06 kg

DRUGS (2)
  1. XIAFLEX [Suspect]
     Active Substance: COLLAGENASE CLOSTRIDIUM HISTOLYTICUM
     Indication: DUPUYTREN^S CONTRACTURE
     Dosage: UNK UNKNOWN, 3 SHOTS
     Route: 026
     Dates: start: 201910, end: 201910
  2. LISINOPRIL. [Concomitant]
     Active Substance: LISINOPRIL
     Indication: PRODUCT USED FOR UNKNOWN INDICATION

REACTIONS (4)
  - Syringe issue [Unknown]
  - Dupuytren^s contracture [Not Recovered/Not Resolved]
  - Injection site pain [Unknown]
  - Wound [Unknown]

NARRATIVE: CASE EVENT DATE: 201910
